FAERS Safety Report 6678297-7 (Version None)
Quarter: 2010Q2

REPORT INFORMATION
  Report Type: 
  Country: None (occurrence: None)
  Receive Date: 20100412
  Receipt Date: 20100412
  Transmission Date: 20101027
  Serious: Yes (Life-Threatening)
  Sender: FDA-Public Use
  Company Number: None

PATIENT
  Age: 57 Year
  Sex: Female
  Weight: 90.7194 kg

DRUGS (6)
  1. ZICAM SWABS MATTRIX [Suspect]
     Indication: NASOPHARYNGITIS
     Dosage: ONE SWAB FOR BOTH NOSTRILS 3 TIMES DAILY NASAL
     Route: 045
     Dates: start: 20090529, end: 20090608
  2. PROZAC-GENERIC FORM [Concomitant]
  3. WELLBUTRIN [Concomitant]
  4. THYROID MEDICINE [Concomitant]
  5. ALEVE (CAPLET) [Concomitant]
  6. DAILY VITAMIN [Concomitant]

REACTIONS (6)
  - ANOSMIA [None]
  - APPLICATION SITE PAIN [None]
  - BURNING SENSATION [None]
  - DEPRESSION [None]
  - FEAR [None]
  - HYPOGEUSIA [None]
